FAERS Safety Report 17432316 (Version 2)
Quarter: 2020Q2

REPORT INFORMATION
  Report Type: Spontaneous
  Country: US (occurrence: US)
  Receive Date: 20200218
  Receipt Date: 20200615
  Transmission Date: 20200713
  Serious: Yes (Hospitalization)
  Sender: FDA-Public Use
  Company Number: US-SA-2020SA042231

PATIENT

DRUGS (1)
  1. KEVZARA [Suspect]
     Active Substance: SARILUMAB
     Indication: RHEUMATOID ARTHRITIS
     Dosage: 200 MG, QOW
     Route: 058
     Dates: start: 20190701

REACTIONS (4)
  - Malaise [Unknown]
  - Intentional dose omission [Unknown]
  - Viral infection [Unknown]
  - Fungal infection [Unknown]

NARRATIVE: CASE EVENT DATE: 201912
